FAERS Safety Report 5486070-0 (Version None)
Quarter: 2007Q4

REPORT INFORMATION
  Report Type: 
  Country: None (occurrence: None)
  Receive Date: 20071015
  Receipt Date: 20071003
  Transmission Date: 20080405
  Serious: Yes (Death, Other)
  Sender: FDA-Public Use
  Company Number: US-PFIZER INC-2007083301

PATIENT
  Age: 7 Year
  Sex: Female

DRUGS (1)
  1. CEREBYX [Suspect]
     Indication: CONVULSION

REACTIONS (5)
  - ANGIOEDEMA [None]
  - DEATH [None]
  - PULMONARY OEDEMA [None]
  - RESPIRATORY FAILURE [None]
  - SKIN REACTION [None]
